FAERS Safety Report 4472906-9 (Version None)
Quarter: 2004Q4

REPORT INFORMATION
  Report Type: 
  Country: None (occurrence: None)
  Receive Date: 20041012
  Receipt Date: 20041012
  Transmission Date: 20050328
  Serious: Yes (Hospitalization)
  Sender: FDA-Public Use
  Company Number: None

PATIENT
  Age: 63 Year
  Sex: Male
  Weight: 50.8 kg

DRUGS (1)
  1. DEXAMETHASONE [Suspect]
     Indication: ADENOCARCINOMA
     Dosage: 40MG, 40MG QD, ORAL
     Route: 048
     Dates: start: 20040524, end: 20040821

REACTIONS (1)
  - GASTROINTESTINAL HAEMORRHAGE [None]
